FAERS Safety Report 16420052 (Version 1)
Quarter: 2019Q2

REPORT INFORMATION
  Report Type: Spontaneous
  Country: US (occurrence: US)
  Receive Date: 20190612
  Receipt Date: 20190612
  Transmission Date: 20190711
  Serious: No
  Sender: FDA-Public Use
  Company Number: US-TEVA-2019-US-1062074

PATIENT
  Sex: Female

DRUGS (1)
  1. CLONAZEPAM ACTAVIS [Suspect]
     Active Substance: CLONAZEPAM
     Route: 065
     Dates: start: 20190409

REACTIONS (5)
  - Drug ineffective [Unknown]
  - Head discomfort [Unknown]
  - Panic attack [Unknown]
  - Anxiety [Unknown]
  - Urticaria [Unknown]
